APPROVED DRUG PRODUCT: MODEYSO
Active Ingredient: DORDAVIPRONE HYDROCHLORIDE
Strength: EQ 125MG BASE
Dosage Form/Route: CAPSULE;ORAL
Application: N219876 | Product #001
Applicant: CHIMERIX INC
Approved: Aug 6, 2025 | RLD: Yes | RS: Yes | Type: RX

PATENTS:
Patent 12102639 | Expires: Jan 30, 2037
Patent 10369154 | Expires: Jan 30, 2037
Patent 10172862 | Expires: Jan 30, 2037
Patent 9629842 | Expires: Apr 30, 2032
Patent RE46290 | Expires: Apr 30, 2032
Patent 11976068 | Expires: Mar 1, 2036
Patent 9265765 | Expires: Jul 26, 2034

EXCLUSIVITY:
Code: NCE | Date: Aug 6, 2030